FAERS Safety Report 7846656-2 (Version None)
Quarter: 2011Q4

REPORT INFORMATION
  Report Type: 
  Country: None (occurrence: None)
  Receive Date: 20111025
  Receipt Date: 20111018
  Transmission Date: 20120403
  Serious: Yes (Other)
  Sender: FDA-Public Use
  Company Number: PHHY2011US13575

PATIENT
  Sex: Female

DRUGS (6)
  1. GILENYA [Suspect]
     Indication: RELAPSING-REMITTING MULTIPLE SCLEROSIS
     Dosage: 0.5 MG, QD
     Route: 048
     Dates: start: 20110207
  2. GILENYA [Suspect]
     Dosage: 0.5 MG, QD
     Route: 048
     Dates: start: 20110210
  3. LISINOPRIL AND HYDROCHLOROTHIAZIDE [Concomitant]
     Dosage: 32.5 MG, QD
     Route: 048
  4. GILENYA [Suspect]
     Dosage: 0.5 MG, QD
     Route: 048
     Dates: start: 20110209
  5. GILENYA [Suspect]
     Dosage: 0.5 MG, QD
     Route: 048
     Dates: start: 20110225
  6. PROPRANOLOL HCL [Concomitant]
     Dosage: 120 MG, QD
     Route: 048

REACTIONS (14)
  - MULTIPLE SCLEROSIS [None]
  - MOTOR DYSFUNCTION [None]
  - PSYCHIATRIC SYMPTOM [None]
  - MYALGIA [None]
  - PAIN IN EXTREMITY [None]
  - VERTIGO [None]
  - BLOOD PRESSURE INCREASED [None]
  - DIZZINESS [None]
  - PARAESTHESIA [None]
  - NAUSEA [None]
  - FATIGUE [None]
  - VOMITING [None]
  - GAIT DISTURBANCE [None]
  - VISION BLURRED [None]
